FAERS Safety Report 5747262-6 (Version None)
Quarter: 2008Q2

REPORT INFORMATION
  Report Type: 
  Country: None (occurrence: None)
  Receive Date: 20080520
  Receipt Date: 20080507
  Transmission Date: 20081010
  Serious: Yes (Life-Threatening, Hospitalization)
  Sender: FDA-Public Use
  Company Number: 100#03#2008-02590

PATIENT
  Age: 46 Year
  Sex: Female

DRUGS (4)
  1. ERYTHROMYCIN [Suspect]
     Indication: CELLULITIS
     Dosage: 500 MG FOUR TIMES DAILY ORAL
     Route: 048
     Dates: start: 20080101, end: 20080430
  2. WARFARIN SODIUM [Suspect]
     Dosage: ORAL
     Route: 048
     Dates: end: 20080410
  3. LEVOTHYROXINE SODIUM [Concomitant]
  4. OESTRADIOL (OESTRADIOL) [Concomitant]

REACTIONS (5)
  - CONTUSION [None]
  - DRUG INTERACTION [None]
  - HAEMATURIA [None]
  - INTERNATIONAL NORMALISED RATIO INCREASED [None]
  - VAGINAL HAEMORRHAGE [None]
